FAERS Safety Report 8421426-5 (Version None)
Quarter: 2012Q2

REPORT INFORMATION
  Report Type: 
  Country: None (occurrence: None)
  Receive Date: 20120608
  Receipt Date: 20120606
  Transmission Date: 20120825
  Serious: Yes (Death, Hospitalization)
  Sender: FDA-Public Use
  Company Number: PHHY2012SA048395

PATIENT
  Age: 56 Year
  Sex: Female

DRUGS (3)
  1. PREDNISONE TAB [Concomitant]
     Dosage: UNK UKN, UNK
  2. CYCLOSPORINE [Suspect]
     Dosage: UNK UKN, UNK
  3. DEXAMETHASONE [Concomitant]
     Dosage: UNK UKN, UNK

REACTIONS (8)
  - MYOCARDIAL INFARCTION [None]
  - DRUG HYPERSENSITIVITY [None]
  - LEFT VENTRICULAR DYSFUNCTION [None]
  - VENTRICULAR ARRHYTHMIA [None]
  - EOSINOPHILIC MYOCARDITIS [None]
  - ELECTROCARDIOGRAM ST SEGMENT ELEVATION [None]
  - GENERAL PHYSICAL HEALTH DETERIORATION [None]
  - CARDIOGENIC SHOCK [None]
